FAERS Safety Report 14547968 (Version 1)
Quarter: 2018Q1

REPORT INFORMATION
  Report Type: Spontaneous
  Country: US (occurrence: US)
  Receive Date: 20180219
  Receipt Date: 20180219
  Transmission Date: 20180509
  Serious: Yes (Other)
  Sender: FDA-Public Use
  Company Number: US-ALLERGAN-1809016US

PATIENT
  Age: 76 Year
  Sex: Female
  Weight: 45.35 kg

DRUGS (1)
  1. REFRESH OPTIVE ADVANCED [Suspect]
     Active Substance: CARBOXYMETHYLCELLULOSE SODIUM\GLYCERIN\POLYSORBATE 80
     Indication: PRODUCT USED FOR UNKNOWN INDICATION
     Dosage: 2 GTT, BID
     Route: 047

REACTIONS (6)
  - Vomiting [Not Recovered/Not Resolved]
  - Drug dose omission [Unknown]
  - Circumstance or information capable of leading to medication error [Unknown]
  - Weight decreased [Not Recovered/Not Resolved]
  - Frequent bowel movements [Not Recovered/Not Resolved]
  - Colon cancer [Not Recovered/Not Resolved]
